FAERS Safety Report 4361385-8 (Version None)
Quarter: 2004Q2

REPORT INFORMATION
  Report Type: 
  Country: None (occurrence: None)
  Receive Date: 20040521
  Receipt Date: 20040413
  Transmission Date: 20050107
  Serious: Yes (Life-Threatening, Other)
  Sender: FDA-Public Use
  Company Number: PHHO2004CA05480

PATIENT
  Age: 79 Year
  Sex: Female

DRUGS (1)
  1. CLOZARIL [Suspect]
     Indication: SCHIZOPHRENIA
     Route: 048
     Dates: start: 20040202, end: 20040413

REACTIONS (5)
  - FALL [None]
  - NEUROMYOPATHY [None]
  - NEUTROPENIA [None]
  - POSTURE ABNORMAL [None]
  - SALIVARY HYPERSECRETION [None]
